FAERS Safety Report 9330291 (Version 2)
Quarter: 2013Q2

REPORT INFORMATION
  Report Type: Spontaneous
  Country: JP (occurrence: JP)
  Receive Date: 20130605
  Receipt Date: 20130621
  Transmission Date: 20140414
  Serious: Yes (Death, Hospitalization, Other)
  Sender: FDA-Public Use
  Company Number: JP-AMGEN-JPNSP2013029584

PATIENT
  Age: 66 Year
  Sex: Female

DRUGS (9)
  1. ENBREL [Suspect]
     Indication: RHEUMATOID ARTHRITIS
     Dosage: 25 MG, 2X/WEEK
     Route: 058
     Dates: start: 20100113
  2. ENBREL [Suspect]
     Dosage: 50 MG, WEEKLY
     Route: 058
     Dates: start: 20120215, end: 20130421
  3. METHOTREXATE [Suspect]
     Dosage: UNK
     Dates: start: 1991, end: 2010
  4. BREDININ [Suspect]
     Indication: RHEUMATOID ARTHRITIS
     Dosage: 50 MG, 3X/DAY
     Route: 048
     Dates: start: 2010
  5. PREDONINE /00016201/ [Suspect]
     Indication: RHEUMATOID ARTHRITIS
     Dosage: 5 MG, 1X/DAY
     Route: 048
     Dates: start: 1975
  6. PREDONINE /00016201/ [Suspect]
     Dosage: 10 MG, 1X/DAY
     Dates: start: 1982
  7. ONE-ALPHA [Concomitant]
     Indication: OSTEOPOROSIS
     Dosage: 0.25 MG, 2X/DAY
     Route: 048
  8. LORFENAMIN [Concomitant]
     Indication: PAIN MANAGEMENT
     Dosage: 60 MG, 3X/DAY
     Route: 048
  9. REMICADE [Concomitant]
     Dosage: UNK
     Dates: start: 2006, end: 2006

REACTIONS (6)
  - Cardiac arrest [Unknown]
  - Feeling abnormal [Unknown]
  - Arthralgia [Unknown]
  - Septic shock [Fatal]
  - Streptococcal infection [Unknown]
  - Arthritis bacterial [Unknown]
